FAERS Safety Report 7761766-6 (Version None)
Quarter: 2011Q3

REPORT INFORMATION
  Report Type: 
  Country: None (occurrence: None)
  Receive Date: 20110920
  Receipt Date: 20110913
  Transmission Date: 20111222
  Serious: Yes (Death, Life-Threatening, Hospitalization)
  Sender: FDA-Public Use
  Company Number: PHHO2005NL01624

PATIENT
  Sex: Male
  Weight: 71 kg

DRUGS (1)
  1. GILENYA [Suspect]
     Indication: RENAL TRANSPLANT
     Dosage: 2.5 MG / DAY
     Route: 048
     Dates: start: 20040620, end: 20050121

REACTIONS (4)
  - ALANINE AMINOTRANSFERASE INCREASED [None]
  - PYREXIA [None]
  - BLOOD LACTATE DEHYDROGENASE INCREASED [None]
  - EPSTEIN-BARR VIRUS ASSOCIATED LYMPHOPROLIFERATIVE DISORDER [None]
